FAERS Safety Report 10128412 (Version 2)
Quarter: 2014Q2

REPORT INFORMATION
  Report Type: Spontaneous
  Country: CA (occurrence: CA)
  Receive Date: 20140428
  Receipt Date: 20140513
  Transmission Date: 20141212
  Serious: Yes (Hospitalization)
  Sender: FDA-Public Use
  Company Number: CA-ROCHE-1390694

PATIENT
  Age: 62 Year
  Sex: Male

DRUGS (4)
  1. RITUXAN [Suspect]
     Indication: CHRONIC LYMPHOCYTIC LEUKAEMIA
     Route: 042
     Dates: start: 2010
  2. FUROSEMIDE [Concomitant]
  3. BISOPROLOL FUMARATE [Concomitant]
  4. AMLODIPINE BESILATE [Concomitant]

REACTIONS (3)
  - Night sweats [Unknown]
  - Pyrexia [Unknown]
  - Pulmonary oedema [Unknown]
